FAERS Safety Report 4765885-8 (Version None)
Quarter: 2005Q3

REPORT INFORMATION
  Report Type: 
  Country: None (occurrence: None)
  Receive Date: 20050907
  Receipt Date: 20050826
  Transmission Date: 20060218
  Serious: Yes (Hospitalization, Disabling)
  Sender: FDA-Public Use
  Company Number: 2005-131883-NL

PATIENT
  Age: 12 Month
  Sex: Female

DRUGS (21)
  1. VECURONIUM BROMIDE [Suspect]
     Indication: SEDATION
     Dosage: INTRAVENOUS DRIP
     Route: 041
     Dates: start: 20050806, end: 20050808
  2. VECURONIUM BROMIDE [Suspect]
     Indication: SEDATION
     Dosage: INTRAVENOUS DRIP
     Route: 041
     Dates: start: 20050809, end: 20050812
  3. VECURONIUM BROMIDE [Suspect]
     Indication: SEDATION
     Dosage: INTRAVENOUS DRIP
     Route: 041
     Dates: start: 20050813, end: 20050815
  4. VECURONIUM BROMIDE [Suspect]
     Indication: SEDATION
     Dosage: INTRAVENOUS DRIP
     Route: 041
     Dates: start: 20050816, end: 20050817
  5. VECURONIUM BROMIDE [Suspect]
     Indication: SEDATION
     Dosage: INTRAVENOUS DRIP
     Route: 041
     Dates: start: 20050201
  6. MIDAZOLAM HYDROCHLORIDE [Suspect]
     Indication: SEDATION
     Dosage: INTRAVENOUS DRIP
     Route: 041
     Dates: start: 20050813, end: 20050515
  7. MIDAZOLAM HYDROCHLORIDE [Suspect]
     Indication: SEDATION
     Dosage: INTRAVENOUS DRIP
     Route: 041
     Dates: start: 20050809, end: 20050812
  8. MIDAZOLAM HYDROCHLORIDE [Suspect]
     Indication: SEDATION
     Dosage: INTRAVENOUS DRIP
     Route: 041
     Dates: start: 20050816, end: 20050817
  9. MIDAZOLAM HYDROCHLORIDE [Suspect]
     Indication: SEDATION
     Dosage: INTRAVENOUS DRIP
     Route: 041
     Dates: start: 20050201
  10. INCREMIN [Concomitant]
  11. TRICLOFOS SODIUM [Concomitant]
  12. DOPAMINE HCL [Concomitant]
  13. ISOPRENALINE HYDROCHLORIDE [Concomitant]
  14. FUROSEMIDE [Concomitant]
  15. SPIRONOLACTONE [Concomitant]
  16. ERYTHROMYCIN ETHYLSUCCINATE [Concomitant]
  17. CARBOCISTEINE [Concomitant]
  18. TRANILAST [Concomitant]
  19. AMINOPHYLLINE [Concomitant]
  20. ARBEKACIN SULFATE [Concomitant]
  21. CARBENIN [Concomitant]

REACTIONS (17)
  - ALANINE AMINOTRANSFERASE INCREASED [None]
  - ASPARTATE AMINOTRANSFERASE INCREASED [None]
  - BLOOD CREATINE PHOSPHOKINASE INCREASED [None]
  - BLOOD LACTATE DEHYDROGENASE INCREASED [None]
  - BRONCHIAL OBSTRUCTION [None]
  - BRONCHOMALACIA [None]
  - CRYING [None]
  - CYANOSIS [None]
  - DEPRESSED LEVEL OF CONSCIOUSNESS [None]
  - DISSEMINATED INTRAVASCULAR COAGULATION [None]
  - DRUG LEVEL INCREASED [None]
  - ENCEPHALITIS [None]
  - HEPATIC FUNCTION ABNORMAL [None]
  - IMMOBILE [None]
  - LOSS OF CONSCIOUSNESS [None]
  - MOVEMENT DISORDER [None]
  - MYOSITIS [None]
